FAERS Safety Report 9333912 (Version 1)
Quarter: 2013Q2

REPORT INFORMATION
  Report Type: Spontaneous
  Country: US (occurrence: US)
  Receive Date: 20130606
  Receipt Date: 20130606
  Transmission Date: 20140414
  Serious: No
  Sender: FDA-Public Use
  Company Number: US-AMGEN-USASP2013003079

PATIENT
  Age: 69 Year
  Sex: Female

DRUGS (7)
  1. PROLIA [Suspect]
     Indication: OSTEOPOROSIS POSTMENOPAUSAL
     Dosage: UNK
     Dates: start: 201101, end: 201206
  2. HUMIRA [Concomitant]
  3. FLUOCINONIDE [Concomitant]
  4. PROZAC [Concomitant]
  5. PREMPRO [Concomitant]
  6. CALCIUM [Concomitant]
  7. NEXIUM                             /01479302/ [Concomitant]

REACTIONS (3)
  - Feeling abnormal [Unknown]
  - Dizziness [Unknown]
  - Musculoskeletal pain [Unknown]
